FAERS Safety Report 15985375 (Version 1)
Quarter: 2019Q1

REPORT INFORMATION
  Report Type: Report from Study
  Country: None (occurrence: US)
  Receive Date: 20190220
  Receipt Date: 20190220
  Transmission Date: 20190418
  Serious: Yes (Hospitalization, Other)
  Sender: FDA-Public Use
  Company Number: US-ABBVIE-19K-163-2625611-00

PATIENT
  Age: 70 Year
  Sex: Female
  Weight: 122.58 kg

DRUGS (26)
  1. FOLIC ACID. [Concomitant]
     Active Substance: FOLIC ACID
     Indication: ANAEMIA
  2. LISINOPRIL. [Concomitant]
     Active Substance: LISINOPRIL
     Indication: HYPERTENSION
  3. ALBUTEROL. [Concomitant]
     Active Substance: ALBUTEROL
     Indication: ASTHMA
  4. PRAVASTATIN. [Concomitant]
     Active Substance: PRAVASTATIN
     Indication: BLOOD CHOLESTEROL INCREASED
  5. SIMBRINZA [Concomitant]
     Active Substance: BRIMONIDINE TARTRATE\BRINZOLAMIDE
     Indication: INJURY CORNEAL
  6. PROAIR HFA [Concomitant]
     Active Substance: ALBUTEROL SULFATE
     Indication: ASTHMA
  7. VITAMIN D3 [Concomitant]
     Active Substance: CHOLECALCIFEROL
     Indication: VITAMIN SUPPLEMENTATION
  8. THERABREATH [Concomitant]
     Indication: DRY MOUTH
  9. HUMIRA [Suspect]
     Active Substance: ADALIMUMAB
     Indication: RHEUMATOID ARTHRITIS
     Route: 058
     Dates: start: 2003, end: 2009
  10. DILTIAZEM. [Concomitant]
     Active Substance: DILTIAZEM
     Indication: HYPERTENSION
  11. COLESTIPOL [Concomitant]
     Active Substance: COLESTIPOL
     Indication: GASTROOESOPHAGEAL REFLUX DISEASE
  12. FISH OIL [Concomitant]
     Active Substance: FISH OIL
     Indication: SUPPLEMENTATION THERAPY
  13. HUMIRA [Suspect]
     Active Substance: ADALIMUMAB
     Route: 058
     Dates: start: 2017, end: 201807
  14. BREO ELLIPTA [Concomitant]
     Active Substance: FLUTICASONE FUROATE\VILANTEROL TRIFENATATE
     Indication: ASTHMA
  15. FLUTICASONE. [Concomitant]
     Active Substance: FLUTICASONE
     Indication: ASTHMA
  16. LIDODERM [Concomitant]
     Active Substance: LIDOCAINE
     Indication: PAIN
  17. TOPIRAMATE. [Concomitant]
     Active Substance: TOPIRAMATE
     Indication: PAIN
  18. METHOTREXATE. [Concomitant]
     Active Substance: METHOTREXATE
     Indication: RHEUMATOID ARTHRITIS
  19. HUMIRA [Suspect]
     Active Substance: ADALIMUMAB
     Indication: PSORIASIS
     Route: 058
     Dates: start: 2016, end: 2017
  20. NEXIUM [Concomitant]
     Active Substance: ESOMEPRAZOLE MAGNESIUM
     Indication: GASTROOESOPHAGEAL REFLUX DISEASE
  21. NEURONTIN [Concomitant]
     Active Substance: GABAPENTIN
     Indication: PAIN
  22. CYCLOPENTOLATE. [Concomitant]
     Active Substance: CYCLOPENTOLATE
     Indication: INJURY CORNEAL
  23. DULCOLAX NOS [Concomitant]
     Active Substance: BISACODYL OR DOCUSATE SODIUM
     Indication: CONSTIPATION PROPHYLAXIS
  24. SYNTHROID [Suspect]
     Active Substance: LEVOTHYROXINE SODIUM
     Indication: THYROIDECTOMY
     Route: 048
     Dates: start: 2006
  25. DULOXETINE. [Concomitant]
     Active Substance: DULOXETINE
     Indication: PAIN
  26. CITRACAL + D [Concomitant]
     Active Substance: CALCIUM CITRATE\VITAMIN D
     Indication: MINERAL SUPPLEMENTATION

REACTIONS (17)
  - Breast cancer female [Recovered/Resolved]
  - Ear pain [Unknown]
  - Axillary web syndrome [Recovering/Resolving]
  - Cataract [Recovered/Resolved]
  - Procedural pain [Recovered/Resolved]
  - Erythema [Recovering/Resolving]
  - Total lung capacity decreased [Not Recovered/Not Resolved]
  - Injury corneal [Recovering/Resolving]
  - Thyroid disorder [Recovered/Resolved]
  - Pulmonary fibrosis [Not Recovered/Not Resolved]
  - Temporomandibular joint syndrome [Unknown]
  - Corneal opacity [Recovering/Resolving]
  - Procedural pain [Recovered/Resolved]
  - Blindness unilateral [Not Recovered/Not Resolved]
  - Corneal oedema [Recovering/Resolving]
  - Pain [Unknown]
  - Intraocular pressure increased [Unknown]

NARRATIVE: CASE EVENT DATE: 2006
